FAERS Safety Report 19286930 (Version 1)
Quarter: 2021Q2

REPORT INFORMATION
  Report Type: Other
  Country: SE (occurrence: SE)
  Receive Date: 20210521
  Receipt Date: 20210521
  Transmission Date: 20210717
  Serious: Yes (Disabling, Other)
  Sender: FDA-Public Use
  Company Number: SE-GLENMARK PHARMACEUTICALS-2021GMK053950

PATIENT

DRUGS (2)
  1. MOMETASON GLENMARK 1 MG/G KR?M [Suspect]
     Active Substance: MOMETASONE FUROATE
     Indication: DERMATITIS ATOPIC
     Dosage: UNK, PRN (1 MG/G VID BEHOV. TILL CA 2 GGR VECKAN VID KLI)
     Route: 061
     Dates: start: 20200220, end: 20200523
  2. ELIDEL [Suspect]
     Active Substance: PIMECROLIMUS
     Indication: DERMATITIS ATOPIC
     Dosage: UNK, OD (DOSERING ^1 GR PER DAG I 2 VECKOR)
     Route: 003
     Dates: start: 20191001, end: 20200301

REACTIONS (9)
  - Eczema [Not Recovered/Not Resolved]
  - Neuralgia [Recovering/Resolving]
  - Skin exfoliation [Not Recovered/Not Resolved]
  - Insomnia [Unknown]
  - Weight decreased [Recovered/Resolved]
  - Burning sensation [Not Recovered/Not Resolved]
  - Steroid withdrawal syndrome [Not Recovered/Not Resolved]
  - Alopecia [Recovering/Resolving]
  - Skin hypertrophy [Not Recovered/Not Resolved]

NARRATIVE: CASE EVENT DATE: 20200330
